FAERS Safety Report 8490033-0 (Version None)
Quarter: 2012Q3

REPORT INFORMATION
  Report Type: 
  Country: None (occurrence: None)
  Receive Date: 20120705
  Receipt Date: 20120627
  Transmission Date: 20120928
  Serious: Yes (Other)
  Sender: FDA-Public Use
  Company Number: US-ELI_LILLY_AND_COMPANY-US201205002638

PATIENT
  Sex: Female
  Weight: 91.61 kg

DRUGS (16)
  1. BYETTA [Suspect]
     Dosage: 5 UG, BID
     Route: 058
     Dates: start: 20120417, end: 20120501
  2. GLUCOPHAGE [Concomitant]
     Indication: TYPE 2 DIABETES MELLITUS
     Dosage: 1000 MG, BID
     Route: 048
  3. TORSEMIDE [Concomitant]
     Dosage: 20 MG, QD
  4. NOVOLOG [Concomitant]
     Dosage: UNK
  5. LANOXIN [Concomitant]
     Dosage: UNK, UNKNOWN
  6. SIMVASTATIN [Concomitant]
     Dosage: 40 MG, EACH EVENING
  7. SPIRIVA [Concomitant]
     Dosage: 18 UG, QD
     Route: 055
  8. COREG [Concomitant]
     Dosage: 6.25 MG, BID
  9. GLIMEPIRIDE [Concomitant]
     Indication: TYPE 2 DIABETES MELLITUS
     Dosage: 2 MG, QD
     Route: 048
  10. LANOXIN [Concomitant]
     Dosage: UNK, UNKNOWN
  11. WARFARIN SODIUM [Concomitant]
     Dosage: 5 MG, UNK
     Route: 048
  12. ADVAIR DISKUS 100/50 [Concomitant]
     Dosage: 1 DF, BID
     Route: 055
  13. BYETTA [Suspect]
     Indication: INSULIN-REQUIRING TYPE 2 DIABETES MELLITUS
     Dosage: 5 UG, BID
     Route: 058
     Dates: start: 20090101
  14. ZESTRIL                                 /USA/ [Concomitant]
     Dosage: 10 MG, QD
  15. SPIRONOLACTONE [Concomitant]
     Dosage: 25 MG, QD
  16. LANTUS [Concomitant]
     Indication: TYPE 2 DIABETES MELLITUS
     Dosage: 57 U, EACH EVENING
     Route: 058
     Dates: start: 20120417

REACTIONS (2)
  - WEIGHT DECREASED [None]
  - URTICARIA [None]
